FAERS Safety Report 6125215-6 (Version None)
Quarter: 2009Q1

REPORT INFORMATION
  Report Type: 
  Country: None (occurrence: None)
  Receive Date: 20090319
  Receipt Date: 20090313
  Transmission Date: 20090719
  Serious: Yes (Other)
  Sender: FDA-Public Use
  Company Number: US-JNJCH-2009007099

PATIENT
  Age: 91 Year
  Sex: Female
  Weight: 52.2 kg

DRUGS (1)
  1. BENADRYL [Suspect]
     Indication: PRURITUS
     Dosage: TEXT:UNSPECIFIED, TWICE DAILY
     Route: 048

REACTIONS (2)
  - CONDITION AGGRAVATED [None]
  - DYSPNOEA [None]
